FAERS Safety Report 25984428 (Version 1)
Quarter: 2025Q4

REPORT INFORMATION
  Report Type: Spontaneous
  Country: US (occurrence: None)
  Receive Date: 20251031
  Receipt Date: 20251031
  Transmission Date: 20260118
  Serious: Yes (Life-Threatening, Hospitalization, Other)
  Sender: FDA-CTU
  Company Number: None

PATIENT
  Age: 27 Year
  Sex: Male
  Weight: 103.5 kg

DRUGS (5)
  1. 7-HYDROXYMITRAGYNINE [Suspect]
     Active Substance: 7-HYDROXYMITRAGYNINE
     Indication: Product used for unknown indication
     Dates: start: 20241001, end: 20250812
  2. 7-HYDROXYMITRAGYNINE [Suspect]
     Active Substance: 7-HYDROXYMITRAGYNINE
  3. 7-HYDROXYMITRAGYNINE [Suspect]
     Active Substance: 7-HYDROXYMITRAGYNINE
  4. 7-HYDROXYMITRAGYNINE [Suspect]
     Active Substance: 7-HYDROXYMITRAGYNINE
  5. 7-HYDROXYMITRAGYNINE [Suspect]
     Active Substance: 7-HYDROXYMITRAGYNINE
     Indication: Product used for unknown indication
     Dates: start: 20241001, end: 20250812

REACTIONS (7)
  - Drug dependence [None]
  - Impaired quality of life [None]
  - Dependence [None]
  - Euphoric mood [None]
  - Dysarthria [None]
  - Hypersomnia [None]
  - Loss of employment [None]

NARRATIVE: CASE EVENT DATE: 20250812
